FAERS Safety Report 20527656 (Version 1)
Quarter: 2022Q1

REPORT INFORMATION
  Report Type: Spontaneous
  Country: US (occurrence: US)
  Receive Date: 20220228
  Receipt Date: 20220228
  Transmission Date: 20220423
  Serious: No
  Sender: FDA-Public Use
  Company Number: US-PERRIGO-21US010734

PATIENT
  Age: 72 Year
  Sex: Female
  Weight: 49.887 kg

DRUGS (9)
  1. ESTRADIOL [Suspect]
     Active Substance: ESTRADIOL
     Indication: Oestrogen replacement therapy
     Dosage: MORE THAN 1 G, THREE TIMES WEEKLY
     Route: 067
     Dates: start: 20210407, end: 20210524
  2. ESTRADIOL [Suspect]
     Active Substance: ESTRADIOL
     Dosage: MORE THAN 1 G, THREE TIMES WEEKLY
     Route: 067
     Dates: start: 20210526, end: 20210528
  3. ESTRADIOL [Suspect]
     Active Substance: ESTRADIOL
     Dosage: MORE THAN 1 G, THREE TIMES WEEKLY
     Route: 067
     Dates: start: 20210430, end: 20210602
  4. ESTRADIOL [Suspect]
     Active Substance: ESTRADIOL
     Dosage: MORE THAN 1 G, THREE TIMES WEEKLY
     Route: 067
     Dates: start: 20210604, end: 20210628
  5. ESTRADIOL [Suspect]
     Active Substance: ESTRADIOL
     Dosage: MORE THAN 1 G, THREE TIMES WEEKLY
     Route: 067
     Dates: start: 20210802, end: 20210802
  6. URIBEL [Concomitant]
     Active Substance: HYOSCYAMINE SULFATE\METHENAMINE\METHYLENE BLUE\PHENYL SALICYLATE\SODIUM PHOSPHATE, MONOBASIC, MONOHY
     Indication: Blood urine present
     Dosage: UNKNOWN, UNKNOWN
     Route: 065
     Dates: start: 20210407
  7. AMLODIPIN                          /00972401/ [Concomitant]
     Indication: Hypertension
     Dosage: 5 MG,UNKNOWN
     Route: 065
  8. PRAVASTATIN [Concomitant]
     Active Substance: PRAVASTATIN
     Indication: Blood cholesterol increased
     Dosage: UNKNOWN, UNKNOWN
     Route: 065
  9. ALENDRONATE [Concomitant]
     Active Substance: ALENDRONATE SODIUM
     Indication: Bone density abnormal
     Dosage: 35 MG, WEEKLY
     Route: 065

REACTIONS (1)
  - Off label use [Recovered/Resolved]

NARRATIVE: CASE EVENT DATE: 20210407
